FAERS Safety Report 6600081-0 (Version None)
Quarter: 2010Q1

REPORT INFORMATION
  Report Type: 
  Country: None (occurrence: None)
  Receive Date: 20100224
  Receipt Date: 20100217
  Transmission Date: 20100710
  Serious: Yes (Other)
  Sender: FDA-Public Use
  Company Number: PHEH2010US02583

PATIENT
  Sex: Female

DRUGS (4)
  1. FEMARA [Suspect]
  2. METFORMIN [Suspect]
  3. OMEPRAZOLE [Suspect]
  4. ESTROGEN NOS [Suspect]

REACTIONS (6)
  - BONE DENSITY DECREASED [None]
  - BREAST CANCER [None]
  - CALCIUM DEFICIENCY [None]
  - DIARRHOEA [None]
  - HAEMORRHAGE [None]
  - LIVER DISORDER [None]
